FAERS Safety Report 5754965-6 (Version None)
Quarter: 2008Q2

REPORT INFORMATION
  Report Type: 
  Country: None (occurrence: None)
  Receive Date: 20080528
  Receipt Date: 20080528
  Transmission Date: 20081010
  Serious: Yes (Hospitalization)
  Sender: FDA-Public Use
  Company Number: None

PATIENT
  Sex: Male
  Weight: 93.63 kg

DRUGS (4)
  1. TAXOTERE [Suspect]
     Dosage: 75 MG
     Dates: end: 20080415
  2. ATRASENTAN/PLACEBO [Concomitant]
  3. DEXAMETHASONE TAB [Concomitant]
  4. PREDNISONE TAB [Concomitant]

REACTIONS (3)
  - DYSPNOEA [None]
  - OEDEMA [None]
  - OEDEMA PERIPHERAL [None]
